FAERS Safety Report 6335683-2 (Version None)
Quarter: 2009Q3

REPORT INFORMATION
  Report Type: 
  Country: None (occurrence: None)
  Receive Date: 20090828
  Receipt Date: 20090818
  Transmission Date: 20100115
  Serious: Yes (Other)
  Sender: FDA-Public Use
  Company Number: 237058K09USA

PATIENT
  Age: 55 Year
  Sex: Male
  Weight: 91 kg

DRUGS (11)
  1. REBIF [Suspect]
     Indication: MULTIPLE SCLEROSIS
     Dosage: 44 MCG, 3 IN 1 WEEKS, SUBCUTANEOUS; SUBCUTANEOUS
     Route: 058
     Dates: start: 20081110, end: 20090612
  2. REBIF [Suspect]
     Indication: MULTIPLE SCLEROSIS
     Dosage: 44 MCG, 3 IN 1 WEEKS, SUBCUTANEOUS; SUBCUTANEOUS
     Route: 058
     Dates: start: 20090803
  3. KLONOPIN [Concomitant]
  4. BACLOFEN [Concomitant]
  5. AZMACORT [Concomitant]
  6. VIVAGLOBIN (ALL OTHER THERAPEUTIC PRODUCTS) [Concomitant]
  7. CLONIDINE [Concomitant]
  8. AMLODIPINE [Concomitant]
  9. NEURONTIN [Concomitant]
  10. VITAMIN D [Concomitant]
  11. AMITRIPTYLINE HYDROCHLORIDE [Concomitant]

REACTIONS (3)
  - ARTHRALGIA [None]
  - BLOOD PRESSURE INCREASED [None]
  - MUSCLE SPASMS [None]
